FAERS Safety Report 6265264-0 (Version None)
Quarter: 2009Q3

REPORT INFORMATION
  Report Type: 
  Country: None (occurrence: None)
  Receive Date: 20090709
  Receipt Date: 20090709
  Transmission Date: 20100115
  Serious: Yes (Death, Hospitalization)
  Sender: FDA-Public Use
  Company Number: None

PATIENT
  Sex: Male
  Weight: 57.7 kg

DRUGS (2)
  1. OXALIPLATIN [Suspect]
     Indication: PANCREATIC CARCINOMA METASTATIC
     Dosage: 116 MG DAYS 1 + 15 Q 28 DAY IV
     Route: 042
     Dates: start: 20090616
  2. SORAFENIB 200 MG TABLETS BAYER PHARMACEUTICALS [Suspect]
     Indication: PANCREATIC CARCINOMA METASTATIC
     Dosage: 200 MG DAYS 1-28 ORAL
     Route: 048
     Dates: end: 20090624

REACTIONS (7)
  - DISCOMFORT [None]
  - DYSPHAGIA [None]
  - INTESTINAL PERFORATION [None]
  - PERFORMANCE STATUS DECREASED [None]
  - REBOUND EFFECT [None]
  - SEPSIS [None]
  - UNRESPONSIVE TO STIMULI [None]
